FAERS Safety Report 9883601 (Version 3)
Quarter: 2014Q2

REPORT INFORMATION
  Report Type: Spontaneous
  Country: JP (occurrence: JP)
  Receive Date: 20140210
  Receipt Date: 20140529
  Transmission Date: 20141212
  Serious: Yes (Other)
  Sender: FDA-Public Use
  Company Number: JP-BRISTOL-MYERS SQUIBB COMPANY-18833335

PATIENT
  Age: 33 Year
  Sex: Female
  Weight: 76 kg

DRUGS (1)
  1. ABILIFY TABS [Suspect]
     Indication: BIPOLAR DISORDER
     Dosage: LAST DOSE ADMINISTERED ON 29-MAR-2013
     Route: 048
     Dates: start: 20100118, end: 20130329

REACTIONS (4)
  - Hyperglycaemia [Recovering/Resolving]
  - Diabetic ketoacidosis [Unknown]
  - Diabetic nephropathy [Unknown]
  - Weight increased [Unknown]
